FAERS Safety Report 4424676-8 (Version None)
Quarter: 2004Q3

REPORT INFORMATION
  Report Type: 
  Country: None (occurrence: None)
  Receive Date: 20040805
  Receipt Date: 20040722
  Transmission Date: 20050211
  Serious: Yes (Other)
  Sender: FDA-Public Use
  Company Number: 2004-UK-00326UK

PATIENT
  Age: 59 Year
  Sex: Female

DRUGS (10)
  1. SPIRIVA [Suspect]
     Indication: CHRONIC OBSTRUCTIVE AIRWAYS DISEASE
     Dosage: 18 MCG (18 MCG, ONCE DAILY)
     Route: 055
     Dates: start: 20021201, end: 20040501
  2. AMITRIPHYLINE              (AMITRIPTYLINE) [Concomitant]
  3. CALCICHEW D3 FORTE       (LEVOKIT CA) (TA) [Concomitant]
  4. AMINOPHYLLINE SR [Concomitant]
  5. DOUISATE SODIUM [Concomitant]
  6. SALMETEROL (SALMETEROL) [Concomitant]
  7. FLUTICASONE PROPIONATE [Concomitant]
  8. SALBUTAMOL (SALBUTAMOL) [Concomitant]
  9. ZOLPIDEM (ZOLPIDEM) [Concomitant]
  10. FLIXOTIDE [Concomitant]

REACTIONS (7)
  - DRY MOUTH [None]
  - GLOSSITIS [None]
  - GLOSSODYNIA [None]
  - ORAL MUCOSAL BLISTERING [None]
  - ORAL PAIN [None]
  - PAIN [None]
  - TONGUE COATED [None]
